FAERS Safety Report 5922339-0 (Version None)
Quarter: 2008Q3

REPORT INFORMATION
  Report Type: 
  Country: None (occurrence: None)
  Receive Date: 20080909
  Receipt Date: 20080103
  Transmission Date: 20090109
  Serious: Yes (Hospitalization)
  Sender: FDA-Public Use
  Company Number: 163-20785-07120441

PATIENT
  Age: 37 Year
  Sex: Female
  Weight: 55 kg

DRUGS (10)
  1. THALOMID [Suspect]
     Indication: SARCOIDOSIS
     Dosage: 50 MG, 1 IN 1 D, ORAL
     Route: 047
     Dates: start: 20070629, end: 20070801
  2. PREDNISONE [Concomitant]
  3. FOLATE (FOLIC ACID) [Concomitant]
  4. CALCIUM (CALCIUM) [Concomitant]
  5. IRON (IRON) [Concomitant]
  6. POTASSIUM (POTASSIUM) [Concomitant]
  7. ARANESP [Concomitant]
  8. CALCITRIOL [Concomitant]
  9. COLACE (DOCUSATE SODIUM) [Concomitant]
  10. PYRIDIUM (PHENAZOPYRIDINE HYDROCHLORIDE) [Concomitant]

REACTIONS (2)
  - ANAEMIA [None]
  - HAEMATURIA [None]
